FAERS Safety Report 5097038-0 (Version None)
Quarter: 2006Q3

REPORT INFORMATION
  Report Type: 
  Country: None (occurrence: None)
  Receive Date: 20060906
  Receipt Date: 20060816
  Transmission Date: 20061208
  Serious: Yes (Death, Hospitalization, Other)
  Sender: FDA-Public Use
  Company Number: US-AMGEN-STX190377

PATIENT
  Sex: Female

DRUGS (4)
  1. ENBREL [Suspect]
     Indication: RHEUMATOID ARTHRITIS
     Dates: start: 19990401
  2. LEVOTHYROXINE SODIUM [Concomitant]
     Dates: start: 20050531
  3. MORPHINE [Concomitant]
     Dates: start: 20050601
  4. PANTOPRAZOLE SODIUM [Concomitant]
     Dates: start: 20050531

REACTIONS (6)
  - BRAIN CONTUSION [None]
  - CARDIAC FAILURE CONGESTIVE [None]
  - DEATH [None]
  - EXTRADURAL HAEMATOMA [None]
  - ISCHAEMIC CARDIOMYOPATHY [None]
  - SUBDURAL HAEMATOMA [None]
